FAERS Safety Report 15500105 (Version 1)
Quarter: 2018Q4

REPORT INFORMATION
  Report Type: Spontaneous
  Country: US (occurrence: US)
  Receive Date: 20181015
  Receipt Date: 20181015
  Transmission Date: 20190205
  Serious: No
  Sender: FDA-Public Use
  Company Number: US-MYLANLABS-2018M1068965

PATIENT
  Sex: Male
  Weight: 143.3 kg

DRUGS (3)
  1. PREDNISONE. [Suspect]
     Active Substance: PREDNISONE
     Dosage: 20 MG, BID
  2. PREDNISONE. [Suspect]
     Active Substance: PREDNISONE
     Indication: POLIOMYELITIS
     Dosage: 20 MG, QID
     Route: 048
     Dates: start: 201709
  3. ACTERA [Suspect]
     Active Substance: ENOXACIN
     Indication: POLIOMYELITIS
     Dosage: UNK

REACTIONS (1)
  - Blood glucose fluctuation [Unknown]
